APPROVED DRUG PRODUCT: KYTRIL
Active Ingredient: GRANISETRON HYDROCHLORIDE
Strength: EQ 2MG BASE/10ML **Federal Register determination that product was not discontinued or withdrawn for safety or effectiveness reasons**
Dosage Form/Route: SOLUTION;ORAL
Application: N021238 | Product #001
Applicant: HOFFMANN LA ROCHE INC
Approved: Jun 27, 2001 | RLD: Yes | RS: No | Type: DISCN